FAERS Safety Report 7561535-6 (Version None)
Quarter: 2011Q2

REPORT INFORMATION
  Report Type: 
  Country: None (occurrence: None)
  Receive Date: 20110621
  Receipt Date: 20110111
  Transmission Date: 20111010
  Serious: No
  Sender: FDA-Public Use
  Company Number: US-ASTRAZENECA-2011SE01978

PATIENT
  Age: 27905 Day
  Sex: Female

DRUGS (9)
  1. ASPIRIN [Concomitant]
  2. LIPITOR [Concomitant]
  3. TOPROL-XL [Concomitant]
  4. NEXIUM [Concomitant]
  5. FUROSEMIDE [Concomitant]
  6. PULMICORT FLEXHALER [Suspect]
     Route: 055
     Dates: start: 20101224
  7. DIOVAN [Concomitant]
  8. ALLEGRA [Concomitant]
  9. MAGNESIUM [Concomitant]

REACTIONS (2)
  - ORAL CANDIDIASIS [None]
  - SENSATION OF FOREIGN BODY [None]
